FAERS Safety Report 7913142-0 (Version None)
Quarter: 2011Q4

REPORT INFORMATION
  Report Type: 
  Country: None (occurrence: None)
  Receive Date: 20111114
  Receipt Date: 20111031
  Transmission Date: 20120403
  Serious: Yes (Hospitalization, Other)
  Sender: FDA-Public Use
  Company Number: US-ELI_LILLY_AND_COMPANY-US201004002999

PATIENT
  Sex: Female

DRUGS (2)
  1. CORTICOSTEROID NOS [Concomitant]
  2. FORTEO [Suspect]
     Indication: OSTEOPOROSIS
     Dosage: UNK, UNKNOWN
     Route: 065
     Dates: start: 20091001, end: 20110301

REACTIONS (4)
  - URINARY TRACT INFECTION [None]
  - RESPIRATORY FAILURE [None]
  - DECUBITUS ULCER [None]
  - CHRONIC OBSTRUCTIVE PULMONARY DISEASE [None]
